FAERS Safety Report 5395033-5 (Version None)
Quarter: 2007Q3

REPORT INFORMATION
  Report Type: 
  Country: None (occurrence: None)
  Receive Date: 20070713
  Receipt Date: 20070504
  Transmission Date: 20080115
  Serious: Yes (Other)
  Sender: FDA-Public Use
  Company Number: US-JNJFOC-20061101249

PATIENT
  Age: 30 Year
  Sex: Female
  Weight: 67.1324 kg

DRUGS (1)
  1. ORTHO EVRA [Suspect]
     Indication: DRUG USE FOR UNKNOWN INDICATION
     Dosage: TRANSDERMAL
     Route: 062
     Dates: start: 20050616, end: 20050625

REACTIONS (2)
  - NAUSEA [None]
  - THROMBOPHLEBITIS SUPERFICIAL [None]
